FAERS Safety Report 7311521-6 (Version None)
Quarter: 2011Q1

REPORT INFORMATION
  Report Type: 
  Country: None (occurrence: None)
  Receive Date: 20110224
  Receipt Date: 20110211
  Transmission Date: 20110831
  Serious: Yes (Other)
  Sender: FDA-Public Use
  Company Number: US-ELI_LILLY_AND_COMPANY-US201102003128

PATIENT
  Sex: Female
  Weight: 77 kg

DRUGS (2)
  1. ULTRAM [Concomitant]
  2. DULOXETINE HYDROCHLORIDE [Suspect]
     Dosage: 30 MG, DAILY (1/D)
     Route: 048
     Dates: start: 20101018, end: 20101019

REACTIONS (2)
  - PRURITUS [None]
  - RASH MACULO-PAPULAR [None]
